FAERS Safety Report 20480494 (Version 1)
Quarter: 2022Q1

REPORT INFORMATION
  Report Type: Spontaneous
  Country: US (occurrence: US)
  Receive Date: 20220216
  Receipt Date: 20220216
  Transmission Date: 20220423
  Serious: No
  Sender: FDA-Public Use
  Company Number: MIQ-05062021-468(V1)

PATIENT
  Age: 80 Year
  Sex: Female
  Weight: 181.6 kg

DRUGS (19)
  1. BIVIGAM [Suspect]
     Active Substance: HUMAN IMMUNOGLOBULIN G
     Indication: Immune system disorder
     Dosage: 40 G, Q 4 WEEKS
     Dates: start: 20210330, end: 20210330
  2. BIVIGAM [Suspect]
     Active Substance: HUMAN IMMUNOGLOBULIN G
     Indication: Immunodeficiency common variable
     Dosage: 40 G, Q 4 WEEKS
     Dates: start: 20210427, end: 20210427
  3. MULTIVITAMIN                       /00097801/ [Concomitant]
     Indication: Product used for unknown indication
     Dosage: UNK
  4. COENZYME Q10 [Concomitant]
     Active Substance: DIETARY SUPPLEMENT\UBIDECARENONE
     Indication: Product used for unknown indication
     Dosage: UNK
  5. BYSTOLIC [Concomitant]
     Active Substance: NEBIVOLOL HYDROCHLORIDE
     Indication: Product used for unknown indication
     Dosage: UNK
  6. PROAIR HFA [Concomitant]
     Active Substance: ALBUTEROL SULFATE
     Indication: Product used for unknown indication
     Dosage: UNK
  7. TYLENOL                            /00020001/ [Concomitant]
     Indication: Product used for unknown indication
     Dosage: UNK
  8. CLONIDINE                          /00171102/ [Concomitant]
     Indication: Product used for unknown indication
     Dosage: UNK
  9. TRULICITY [Concomitant]
     Active Substance: DULAGLUTIDE
     Indication: Product used for unknown indication
     Dosage: UNK
  10. CLONIDINE                          /00171102/ [Concomitant]
     Indication: Product used for unknown indication
     Dosage: UNK
  11. AMANTADINE                         /00055902/ [Concomitant]
     Indication: Product used for unknown indication
     Dosage: UNK
  12. IRON PLUS                          /00292601/ [Concomitant]
     Indication: Product used for unknown indication
     Dosage: UNK
  13. SYNTHROID [Concomitant]
     Active Substance: LEVOTHYROXINE SODIUM
     Indication: Product used for unknown indication
     Dosage: UNK
  14. ATORVASTATIN                       /01326102/ [Concomitant]
     Indication: Product used for unknown indication
     Dosage: UNK
  15. TELMISARTAN [Concomitant]
     Active Substance: TELMISARTAN
     Indication: Product used for unknown indication
     Dosage: UNK
  16. ULTIMATE PROBIOTIC ACIDOPHILUS [Concomitant]
     Indication: Product used for unknown indication
     Dosage: UNK
  17. CALCIUM CITRATE\CHOLECALCIFEROL [Concomitant]
     Active Substance: CALCIUM CITRATE\CHOLECALCIFEROL
     Indication: Product used for unknown indication
     Dosage: UNK
  18. BREO ELLIPTA [Concomitant]
     Active Substance: FLUTICASONE FUROATE\VILANTEROL TRIFENATATE
     Indication: Product used for unknown indication
     Dosage: UNK
  19. HYDROCHLOROTHIAZIDE [Concomitant]
     Active Substance: HYDROCHLOROTHIAZIDE
     Indication: Product used for unknown indication
     Dosage: UNK

REACTIONS (11)
  - Somnolence [Unknown]
  - Gait disturbance [Unknown]
  - Muscle spasms [Unknown]
  - Lethargy [Unknown]
  - Dizziness [Unknown]
  - Back pain [Unknown]
  - Fatigue [Unknown]
  - Nausea [Unknown]
  - Asthenia [Unknown]
  - Tremor [Unknown]
  - Headache [Unknown]

NARRATIVE: CASE EVENT DATE: 20210330
